FAERS Safety Report 7655180-1 (Version None)
Quarter: 2011Q3

REPORT INFORMATION
  Report Type: 
  Country: None (occurrence: None)
  Receive Date: 20110804
  Receipt Date: 20110731
  Transmission Date: 20111222
  Serious: No
  Sender: FDA-Public Use
  Company Number: US-PFIZER INC-2011173943

PATIENT
  Sex: Female
  Weight: 61.224 kg

DRUGS (5)
  1. ADVIL LIQUI-GELS [Suspect]
     Indication: NEUROPATHY PERIPHERAL
     Dosage: 200 MG, AS NEEDED
  2. LISINOPRIL [Concomitant]
     Indication: HYPERTENSION
     Dosage: 25 MG, 2X/DAY
  3. AMLODIPINE [Concomitant]
     Indication: HYPERTENSION
     Dosage: 2.5 MG, 2X/DAY
  4. CARVEDILOL [Concomitant]
     Indication: ARRHYTHMIA
     Dosage: 125 MG, 2X/DAY
  5. ADVIL LIQUI-GELS [Suspect]
     Indication: MIGRAINE
     Dosage: 400 MG, UNK

REACTIONS (1)
  - HAEMORRHAGE [None]
